FAERS Safety Report 15320190 (Version 3)
Quarter: 2018Q3

REPORT INFORMATION
  Report Type: Spontaneous
  Country: US (occurrence: US)
  Receive Date: 20180827
  Receipt Date: 20180906
  Transmission Date: 20181010
  Serious: No
  Sender: FDA-Public Use
  Company Number: US-PFIZER INC-2018341526

PATIENT
  Age: 57 Year
  Sex: Female

DRUGS (1)
  1. PREMARIN [Suspect]
     Active Substance: ESTROGENS, CONJUGATED
     Dosage: UNK
     Route: 067

REACTIONS (6)
  - Pain in extremity [Unknown]
  - Muscle tightness [Unknown]
  - Hypoaesthesia [Unknown]
  - Muscle spasms [Unknown]
  - Blood follicle stimulating hormone increased [Unknown]
  - Swelling [Unknown]
